FAERS Safety Report 8619003-6 (Version None)
Quarter: 2012Q3

REPORT INFORMATION
  Report Type: 
  Country: None (occurrence: None)
  Receive Date: 20120816
  Receipt Date: 20120816
  Transmission Date: 20120928
  Serious: Yes (Hospitalization)
  Sender: FDA-Public Use
  Company Number: None

PATIENT
  Sex: Male
  Weight: 95 kg

DRUGS (4)
  1. ELOXATIN [Suspect]
     Dosage: 144 MG
     Dates: end: 20120626
  2. AVASTIN [Suspect]
     Dosage: 470 MG
     Dates: end: 20120626
  3. LEUCOVORIN CALCIUM [Suspect]
     Dosage: 860 MG
     Dates: end: 20120626
  4. FLUOROURACIL [Suspect]
     Dosage: 4972 MG
     Dates: end: 20120626

REACTIONS (4)
  - HAEMORRHAGE [None]
  - TACHYCARDIA [None]
  - GASTROINTESTINAL STOMA COMPLICATION [None]
  - THROMBOCYTOPENIA [None]
